FAERS Safety Report 5213408-1 (Version None)
Quarter: 2007Q1

REPORT INFORMATION
  Report Type: 
  Country: None (occurrence: None)
  Receive Date: 20070116
  Receipt Date: 20070108
  Transmission Date: 20070707
  Serious: Yes (Death)
  Sender: FDA-Public Use
  Company Number: DEWYE082409JAN07

PATIENT

DRUGS (3)
  1. VENLAFAXINE HCL [Suspect]
     Indication: ANXIETY DISORDER
     Dosage: 75 MG 2X PER 1 DAY
     Route: 048
     Dates: start: 20030718
  2. VENLAFAXINE HCL [Suspect]
     Indication: DEPRESSION
     Dosage: 75 MG 2X PER 1 DAY
     Route: 048
     Dates: start: 20030718
  3. VENLAFAXINE HCL [Suspect]
     Indication: PANIC DISORDER
     Dosage: 75 MG 2X PER 1 DAY
     Route: 048
     Dates: start: 20030718

REACTIONS (4)
  - DEATH NEONATAL [None]
  - DRUG EXPOSURE DURING PREGNANCY [None]
  - INJURY ASPHYXIATION [None]
  - UMBILICAL CORD AROUND NECK [None]
